FAERS Safety Report 16619167 (Version 1)
Quarter: 2019Q3

REPORT INFORMATION
  Report Type: Spontaneous
  Country: TR (occurrence: TR)
  Receive Date: 20190723
  Receipt Date: 20190723
  Transmission Date: 20191004
  Serious: Yes (Death, Other)
  Sender: FDA-Public Use
  Company Number: PHHY2019TR168414

PATIENT
  Age: 65 Year
  Sex: Male

DRUGS (7)
  1. CYCLOPHOSPHAMIDE. [Suspect]
     Active Substance: CYCLOPHOSPHAMIDE
     Indication: DIFFUSE LARGE B-CELL LYMPHOMA
     Dosage: 6 DF, CYCLIC
     Route: 065
  2. PREDNISOLONE. [Suspect]
     Active Substance: PREDNISOLONE
     Indication: DIFFUSE LARGE B-CELL LYMPHOMA
     Dosage: 6 DF, CYCLIC
     Route: 065
  3. RITUXIMAB. [Suspect]
     Active Substance: RITUXIMAB
     Indication: DIFFUSE LARGE B-CELL LYMPHOMA
     Dosage: 6 DF, CYCLIC
     Route: 065
  4. DOXORUBICIN [Suspect]
     Active Substance: DOXORUBICIN
     Indication: DIFFUSE LARGE B-CELL LYMPHOMA
     Dosage: 6 DF, CYCLIC
     Route: 065
  5. IFOSFAMIDE + CARBOPLATIN + ETOPOSIDE [Suspect]
     Active Substance: CARBOPLATIN\ETOPOSIDE\IFOSFAMIDE
     Indication: DIFFUSE LARGE B-CELL LYMPHOMA
     Dosage: UNK UNK, CYCLIC
     Route: 065
  6. BEAM [Suspect]
     Active Substance: SODIUM FLUORIDE
     Indication: DIFFUSE LARGE B-CELL LYMPHOMA
     Route: 065
  7. VINCRISTINE [Suspect]
     Active Substance: VINCRISTINE
     Indication: DIFFUSE LARGE B-CELL LYMPHOMA
     Dosage: 6 DF, CYCLIC
     Route: 065

REACTIONS (9)
  - Intestinal dilatation [Fatal]
  - Febrile neutropenia [Fatal]
  - Intestinal perforation [Fatal]
  - Diffuse large B-cell lymphoma recurrent [Unknown]
  - Aspergillus infection [Fatal]
  - Upper gastrointestinal haemorrhage [Fatal]
  - Vomiting [Fatal]
  - Abdominal pain [Fatal]
  - Necrosis [Fatal]
